FAERS Safety Report 8714482 (Version 2)
Quarter: 2012Q4

REPORT INFORMATION
  Report Type: 
  Country: US (occurrence: US)
  Receive Date: 20120809
  Receipt Date: 20120924
  Transmission Date: 20130627
  Serious: No
  Sender: FDA-Public Use
  Company Number: US-PFIZER INC-2012193118

PATIENT
  Age: 41 Year
  Sex: Female
  Weight: 83.9 kg

DRUGS (10)
  1. CHANTIX [Suspect]
     Indication: SMOKING CESSATION THERAPY
     Dosage: UNK
     Route: 048
  2. NEURONTIN [Concomitant]
     Indication: NEURALGIA
     Dosage: UNK
  3. BACLOFEN [Concomitant]
     Indication: MYALGIA
     Dosage: UNK
  4. MORPHINE SULFATE [Concomitant]
     Indication: PAIN
     Dosage: UNK
  5. VICODIN [Concomitant]
     Indication: PAIN
     Dosage: UNK
     Route: 048
  6. XANAX [Concomitant]
     Indication: ANXIETY
     Dosage: UNK
     Route: 048
  7. DOXEPIN [Concomitant]
     Indication: SLEEP DISORDER
     Dosage: UNK
  8. VYTORIN [Concomitant]
     Dosage: UNK
  9. KLOR-CON [Concomitant]
     Dosage: UNK
  10. CITALOPRAM [Concomitant]
     Indication: DEPRESSION
     Dosage: UNK

REACTIONS (1)
  - Hypertension [Unknown]
